FAERS Safety Report 17802227 (Version 1)
Quarter: 2020Q2

REPORT INFORMATION
  Report Type: Spontaneous
  Country: US (occurrence: US)
  Receive Date: 20200519
  Receipt Date: 20200519
  Transmission Date: 20200714
  Serious: No
  Sender: FDA-Public Use
  Company Number: US-PFIZER INC-2020197829

PATIENT
  Sex: Female

DRUGS (2)
  1. DOFETILIDE. [Suspect]
     Active Substance: DOFETILIDE
     Dosage: 500 UG, 2X/DAY( 500 MCG TWICE DAILY)
  2. DOFETILIDE. [Suspect]
     Active Substance: DOFETILIDE
     Dosage: 250 UG, 2X/DAY(250 MCG TWICE DAILY)

REACTIONS (2)
  - Extrasystoles [Unknown]
  - Atrial flutter [Unknown]
